FAERS Safety Report 24539601 (Version 2)
Quarter: 2025Q1

REPORT INFORMATION
  Report Type: Report from Study
  Country: GB (occurrence: GB)
  Receive Date: 20241023
  Receipt Date: 20250205
  Transmission Date: 20250409
  Serious: Yes (Hospitalization)
  Sender: SANDOZ
  Company Number: GB-SANDOZ-SDZ2024GB048560

PATIENT
  Sex: Male

DRUGS (1)
  1. HYRIMOZ [Suspect]
     Active Substance: ADALIMUMAB-ADAZ
     Indication: Rheumatoid arthritis
     Dosage: 40 MG, QW (40 MG/0.8 ML PRE-FILLED SYRINGE)
     Route: 058

REACTIONS (3)
  - Surgery [Unknown]
  - Hospitalisation [Unknown]
  - Localised infection [Unknown]
